FAERS Safety Report 11588919 (Version 1)
Quarter: 2015Q4

REPORT INFORMATION
  Report Type: Not Available
  Country: NZ (occurrence: NZ)
  Receive Date: 20151002
  Receipt Date: 20151002
  Transmission Date: 20160304
  Serious: Yes (Hospitalization)
  Sender: FDA-Public Use
  Company Number: NZ-MUNDIPHARMA DS AND PHARMACOVIGILANCE-GBR-2015-0031081

PATIENT
  Age: 79 Year
  Sex: Female

DRUGS (3)
  1. CELECOXIB. [Concomitant]
     Active Substance: CELECOXIB
     Indication: PAIN
     Dosage: 100 MG, PRN
     Dates: start: 20140610, end: 20140624
  2. OXYCODONE HYDROCHLORIDE. [Suspect]
     Active Substance: OXYCODONE HYDROCHLORIDE
     Indication: PAIN
     Dosage: 10 MG, DAILY
     Route: 048
     Dates: start: 20140610, end: 20140624
  3. GABAPENTIN. [Suspect]
     Active Substance: GABAPENTIN
     Indication: JOINT ARTHROPLASTY
     Dosage: 100 MG, DAILY
     Route: 048
     Dates: start: 20140610, end: 20140630

REACTIONS (1)
  - Suicide attempt [Recovered/Resolved]

NARRATIVE: CASE EVENT DATE: 20140630
